FAERS Safety Report 16259844 (Version 1)
Quarter: 2019Q2

REPORT INFORMATION
  Report Type: Spontaneous
  Country: US (occurrence: US)
  Receive Date: 20190326
  Receipt Date: 20190326
  Transmission Date: 20190711
  Serious: Yes (Other)
  Sender: FDA-Public Use
  Company Number: None

PATIENT
  Age: 77 Year
  Sex: Male

DRUGS (1)
  1. ALLOPURINOL. [Suspect]
     Active Substance: ALLOPURINOL
     Indication: GOUT
     Route: 048
     Dates: start: 20170504, end: 20190201

REACTIONS (13)
  - Liver function test increased [None]
  - Aspartate aminotransferase increased [None]
  - Blood creatinine increased [None]
  - Pruritus [None]
  - Blood urea increased [None]
  - Therapy cessation [None]
  - Blood bilirubin increased [None]
  - Nausea [None]
  - Vomiting [None]
  - Refusal of treatment by relative [None]
  - Blood alkaline phosphatase increased [None]
  - Urticaria [None]
  - Alanine aminotransferase increased [None]

NARRATIVE: CASE EVENT DATE: 20190201
